FAERS Safety Report 5232453-3 (Version None)
Quarter: 2007Q1

REPORT INFORMATION
  Report Type: 
  Country: None (occurrence: None)
  Receive Date: 20070205
  Receipt Date: 20070201
  Transmission Date: 20070707
  Serious: Yes (Hospitalization)
  Sender: FDA-Public Use
  Company Number: US019026

PATIENT
  Age: 49 Year
  Sex: Female

DRUGS (15)
  1. PROVIGIL [Suspect]
     Indication: SLEEP DISORDER
     Dosage: 200 MG QD ORAL
     Route: 048
     Dates: start: 20061103, end: 20061201
  2. PREDNISONE 50MG TAB [Concomitant]
  3. PROTONIX [Concomitant]
  4. CELEBREX [Concomitant]
  5. CYMBALTA [Concomitant]
  6. PROPRANOLOL [Concomitant]
  7. CLORAZEPATE [Concomitant]
  8. IMURAN [Concomitant]
  9. FENTANYL TRANSDERMAL SYSTEM [Concomitant]
  10. REQUIP [Concomitant]
  11. NASONEX [Concomitant]
  12. VICODIN [Concomitant]
  13. ECLIZINE [Concomitant]
  14. NYSTATIN [Concomitant]
  15. MEDICAL MARIJUANA [Concomitant]

REACTIONS (1)
  - TOXIC EPIDERMAL NECROLYSIS [None]
